FAERS Safety Report 11925552 (Version 1)
Quarter: 2016Q1

REPORT INFORMATION
  Report Type: Spontaneous
  Country: FR (occurrence: FR)
  Receive Date: 20160118
  Receipt Date: 20160118
  Transmission Date: 20160526
  Serious: Yes (Hospitalization, Other)
  Sender: FDA-Public Use
  Company Number: FR-009507513-1601FRA005958

PATIENT
  Sex: Female

DRUGS (12)
  1. CELESTENE CHRONODOSE [Suspect]
     Active Substance: BETAMETHASONE
     Dosage: 12 MG,
     Dates: start: 20150824, end: 20150825
  2. CEFOTAXIME SODIUM [Suspect]
     Active Substance: CEFOTAXIME SODIUM
     Dosage: UNK
     Dates: end: 20150829
  3. METRONIDAZOLE. [Suspect]
     Active Substance: METRONIDAZOLE
     Dosage: UNK
     Dates: end: 20150829
  4. ROPIVACAINE HYDROCHLORIDE. [Suspect]
     Active Substance: ROPIVACAINE HYDROCHLORIDE
     Dosage: UNK
     Dates: start: 20150916
  5. VALDOXAN [Suspect]
     Active Substance: AGOMELATINE
     Indication: BIPOLAR DISORDER
     Dosage: UNK
     Dates: end: 20150514
  6. XEROQUEL [Suspect]
     Active Substance: QUETIAPINE FUMARATE
     Indication: BIPOLAR DISORDER
     Dosage: UNK
     Dates: end: 20150514
  7. TERALITHE [Suspect]
     Active Substance: LITHIUM CARBONATE
     Indication: BIPOLAR DISORDER
     Dosage: UNK
     Dates: end: 20150514
  8. ZYPREXA [Suspect]
     Active Substance: OLANZAPINE
     Dosage: 10 MG, DAILY
     Dates: start: 20150617, end: 20150916
  9. SUFENTANIL [Suspect]
     Active Substance: SUFENTANIL
     Dosage: UNK
     Dates: start: 20150916
  10. CELESTENE CHRONODOSE [Suspect]
     Active Substance: BETAMETHASONE
     Dosage: 12 MG,
     Dates: start: 20150916
  11. XYLOCAINE [Suspect]
     Active Substance: LIDOCAINE HYDROCHLORIDE
     Dosage: UNK
     Dates: start: 20150916
  12. AMOXICILLIN. [Suspect]
     Active Substance: AMOXICILLIN
     Dosage: UNK
     Dates: end: 20150904

REACTIONS (3)
  - Caesarean section [Unknown]
  - Exposure during pregnancy [Recovered/Resolved]
  - Premature delivery [Unknown]

NARRATIVE: CASE EVENT DATE: 20150916
